FAERS Safety Report 4615826-9 (Version None)
Quarter: 2005Q2

REPORT INFORMATION
  Report Type: 
  Country: None (occurrence: None)
  Receive Date: 20050308
  Receipt Date: 20040420
  Transmission Date: 20051028
  Serious: Yes (Death)
  Sender: FDA-Public Use
  Company Number: 200411377GDS

PATIENT
  Age: 48 Year

DRUGS (1)
  1. CIPROFLOXACIN [Suspect]
     Dosage: PARENTERAL
     Route: 051

REACTIONS (1)
  - OVERDOSE [None]
